FAERS Safety Report 19853204 (Version 1)
Quarter: 2021Q3

REPORT INFORMATION
  Report Type: Spontaneous
  Country: US (occurrence: US)
  Receive Date: 20210919
  Receipt Date: 20210919
  Transmission Date: 20211014
  Serious: No
  Sender: FDA-Public Use
  Company Number: US-SA-2021SA304744

PATIENT
  Age: 9 Year
  Sex: Female
  Weight: 47 kg

DRUGS (2)
  1. DUPIXENT [Suspect]
     Active Substance: DUPILUMAB
     Dosage: 2.28 ML, OTHER
     Route: 058
     Dates: start: 20210705
  2. CLORAX [Suspect]
     Active Substance: CHLORAMPHENICOL

REACTIONS (4)
  - Eye pain [Unknown]
  - Injection site swelling [Unknown]
  - Rash [Unknown]
  - Headache [Unknown]

NARRATIVE: CASE EVENT DATE: 20210705
